FAERS Safety Report 9115071 (Version 1)
Quarter: 2013Q1

REPORT INFORMATION
  Report Type: Spontaneous
  Country: JP (occurrence: None)
  Receive Date: 20130125
  Receipt Date: 20130125
  Transmission Date: 20140127
  Serious: Yes (Other)
  Sender: FDA-Public Use
  Company Number: SPI201300016

PATIENT
  Age: 42 Year
  Sex: Female

DRUGS (1)
  1. AMITIZA (LUBIPROSTONE) CAPSULE. 24 MCG [Suspect]
     Dates: start: 20121208

REACTIONS (2)
  - Renal failure [None]
  - Dialysis [None]
